FAERS Safety Report 8073787-7 (Version None)
Quarter: 2012Q1

REPORT INFORMATION
  Report Type: 
  Country: None (occurrence: None)
  Receive Date: 20120126
  Receipt Date: 20120119
  Transmission Date: 20120608
  Serious: Yes (Other)
  Sender: FDA-Public Use
  Company Number: DE-PFIZER INC-2011218375

PATIENT
  Age: 70 Year
  Sex: Female

DRUGS (6)
  1. RAMIPRIL [Suspect]
     Indication: HYPERTENSION
     Dosage: UNK
     Route: 048
  2. ALISKIREN [Suspect]
     Indication: HYPERTENSION
     Dosage: 300 MG, DAILY
     Route: 048
     Dates: start: 20110430, end: 20110518
  3. ACETYLSALICYLIC ACID [Concomitant]
     Dosage: UNK
     Dates: start: 19990101
  4. SIMVASTATIN [Concomitant]
     Dosage: UNK
     Dates: start: 19990101
  5. BISOPROLOL [Concomitant]
     Dosage: UNK
     Dates: start: 20040101
  6. AMLODIPINE [Concomitant]
     Dosage: UNK
     Dates: start: 19990101

REACTIONS (2)
  - ANGIOEDEMA [None]
  - LIP SWELLING [None]
